FAERS Safety Report 4288511-3 (Version None)
Quarter: 2004Q1

REPORT INFORMATION
  Report Type: 
  Country: None (occurrence: None)
  Receive Date: 20040205
  Receipt Date: 20040126
  Transmission Date: 20041129
  Serious: Yes (Death)
  Sender: FDA-Public Use
  Company Number: 2003040619

PATIENT
  Age: 51 Year
  Sex: Female
  Weight: 84.369 kg

DRUGS (36)
  1. ZITHROMAX [Suspect]
     Indication: COUGH
     Dates: start: 20030121
  2. ZITHROMAX [Suspect]
     Indication: HOARSENESS
     Dates: start: 20030121
  3. ZITHROMAX [Suspect]
     Indication: ILL-DEFINED DISORDER
     Dates: start: 20030121
  4. ZITHROMAX [Suspect]
     Indication: RHINORRHOEA
     Dates: start: 20030121
  5. ETANERCEPT (ETANERCEPT) [Suspect]
     Indication: ILL-DEFINED DISORDER
  6. METHOTREXATE [Suspect]
     Indication: ILL-DEFINED DISORDER
     Dosage: 100 MG (WEEKLY), ORAL
     Route: 048
     Dates: start: 19990729
  7. SULFASALAZINE [Concomitant]
  8. FLUOXETINE [Concomitant]
  9. CLONAZEPAM [Concomitant]
  10. ANOVLAR (NORETHISTERONE ACETATE, ETHINYLESTRADIOL) [Concomitant]
  11. MELATONIN (MELATONIN) [Concomitant]
  12. OMEPRAZOLE [Concomitant]
  13. ARTHROTEC [Concomitant]
  14. FERROUS SULFATE TAB [Concomitant]
  15. LORAZEPAM [Concomitant]
  16. TRAMADOL HYDROCHLQRIDE (TRAMADOL HYDROCHLORIDE) [Concomitant]
  17. ANOVLAR (NORETHISTERONE ACETATE, ETHINYLESTRADIOL) [Concomitant]
  18. FEXOFENADINE HYDROCHLORIDE [Concomitant]
  19. BUSPIRONE HCL [Concomitant]
  20. TRAZODONE HCL [Concomitant]
  21. ZOLPIDEM TARTRATE [Concomitant]
  22. VALPROATE SODIUM [Concomitant]
  23. FOLINIC ACID (FOLINIC ACID) [Concomitant]
  24. MULTIVITAMINS (ERGOCALCIFEROL/ASCORBIC ACID, FOLIC ACID, THIAMINE HYDR [Concomitant]
  25. TOCOPHEROL CONCENTRATE CAP [Concomitant]
  26. VENLAFAXINE HCL [Concomitant]
  27. NIZATIDINE [Concomitant]
  28. DICYCLOVERINE HYDROCHLORIDE (DICYCLOVERINE HYDROCHLORIDE) [Concomitant]
  29. CHOLESTYRAMINE [Concomitant]
  30. NYSTATIN [Concomitant]
  31. TRIAMCINOLONE (TRIANCINOLONE) [Concomitant]
  32. VALACICLOVIR HYDROCHLORIDE (VALACICLOVIR HYDROCHLORIDE) [Concomitant]
  33. HYDROCODONE (HYDROCODONE) [Concomitant]
  34. ULTRACET [Concomitant]
  35. FLUCONAZOLE [Concomitant]
  36. SILDENAFIL CITRATE (SLLDENAFIL CITRATE) [Concomitant]

REACTIONS (4)
  - COUGH [None]
  - FEELING ABNORMAL [None]
  - HOARSENESS [None]
  - RHINORRHOEA [None]
